FAERS Safety Report 24652566 (Version 1)
Quarter: 2024Q4

REPORT INFORMATION
  Report Type: Other
  Country: US (occurrence: US)
  Receive Date: 20241122
  Receipt Date: 20241122
  Transmission Date: 20250115
  Serious: No
  Sender: NOSTRUM
  Company Number: US-Nostrum Laboratories, Inc.-2165616

PATIENT
  Age: 78 Year
  Sex: Female

DRUGS (3)
  1. HYDROCODONE BITARTRATE\IBUPROFEN [Suspect]
     Active Substance: HYDROCODONE BITARTRATE\IBUPROFEN
     Indication: Product used for unknown indication
  2. PIOGLITAZONE [Concomitant]
     Active Substance: PIOGLITAZONE
  3. DULOXETINE [Concomitant]
     Active Substance: DULOXETINE

REACTIONS (3)
  - Nausea [Unknown]
  - Rash [Unknown]
  - Vomiting [Unknown]
